FAERS Safety Report 17963680 (Version 1)
Quarter: 2020Q2

REPORT INFORMATION
  Report Type: Spontaneous
  Country: PT (occurrence: PT)
  Receive Date: 20200630
  Receipt Date: 20200630
  Transmission Date: 20200714
  Serious: Yes (Hospitalization, Other)
  Sender: FDA-Public Use
  Company Number: PT-MYLANLABS-2019M1128950

PATIENT
  Age: 65 Year
  Sex: Female

DRUGS (4)
  1. BOSENTAN. [Suspect]
     Active Substance: BOSENTAN
     Indication: VASOSPASM
  2. BOSENTAN. [Suspect]
     Active Substance: BOSENTAN
     Indication: SKIN ULCER
  3. BOSENTAN. [Suspect]
     Active Substance: BOSENTAN
     Indication: SCLERODERMA ASSOCIATED DIGITAL ULCER
     Dosage: UNK
     Route: 048
     Dates: start: 2007
  4. BOSENTAN. [Suspect]
     Active Substance: BOSENTAN
     Indication: HYPERTENSION

REACTIONS (5)
  - Vasospasm [Recovered/Resolved]
  - Concomitant disease aggravated [Recovered/Resolved]
  - Hepatic enzyme increased [Recovered/Resolved]
  - Infected skin ulcer [Recovered/Resolved]
  - Skin ulcer [Recovered/Resolved]

NARRATIVE: CASE EVENT DATE: 2007
